FAERS Safety Report 22728042 (Version 2)
Quarter: 2024Q3

REPORT INFORMATION
  Report Type: Spontaneous
  Country: IT (occurrence: IT)
  Receive Date: 20230720
  Receipt Date: 20240919
  Transmission Date: 20241016
  Serious: Yes (Hospitalization, Other)
  Sender: CELLTRION
  Company Number: IT-CELLTRION INC.-2023IT014149

PATIENT

DRUGS (28)
  1. TRASTUZUMAB [Suspect]
     Active Substance: TRASTUZUMAB
     Indication: Breast cancer metastatic
     Dosage: 480 MILLIGRAM, Q3WK (ADDITIONAL INFORMATION ON DRUG (FREE TEXT): [ACTIONDRUG = UNKNOWN])
     Route: 042
     Dates: start: 20170905, end: 20170905
  2. TRASTUZUMAB [Suspect]
     Active Substance: TRASTUZUMAB
     Dosage: 480 MILLIGRAM, Q3WK (ADDITIONAL INFORMATION ON DRUG (FREE TEXT): [ACTIONDRUG = UNKNOWN])
     Route: 042
     Dates: start: 20190410, end: 20190410
  3. TRASTUZUMAB [Suspect]
     Active Substance: TRASTUZUMAB
     Dosage: 480 MILLIGRAM, Q3WK (ADDITIONAL INFORMATION ON DRUG (FREE TEXT): [ACTIONDRUG = UNKNOWN])
     Route: 042
     Dates: start: 20170927, end: 20180419
  4. PACLITAXEL [Suspect]
     Active Substance: PACLITAXEL
     Indication: Breast cancer metastatic
     Dosage: 100 MILLIGRAM, QWK; MOST RECENT DOSE PRIOR TO THE EVENT: 10/NOV/2017 TOTAL DOSE: 800 MG (DUE TO DIFF
     Route: 042
     Dates: start: 20170905, end: 20171024
  5. PACLITAXEL [Suspect]
     Active Substance: PACLITAXEL
     Dosage: 100 MILLIGRAM, QWK; MOST RECENT DOSE PRIOR TO THE EVENT: 10/NOV/2017 (ADDITIONAL INFORMATION ON DRUG
     Route: 042
     Dates: start: 20171110, end: 20180119
  6. PERTUZUMAB [Suspect]
     Active Substance: PERTUZUMAB
     Indication: Breast cancer metastatic
     Dosage: 420 MG, EVERY 3 WEEK (ADDITIONAL INFORMATION ON DRUG (FREE TEXT): [ACTIONDRUG = UNKNOWN])
     Route: 042
     Dates: start: 20170927, end: 20180419
  7. PERTUZUMAB [Suspect]
     Active Substance: PERTUZUMAB
     Dosage: 840 MILLIGRAM, Q3WK; MOST RECENT DOSE PRIOR TO THE EVENT: 27/SEP/2017 (ADDITIONAL INFORMATION ON DRU
     Route: 042
     Dates: start: 20170905, end: 20170905
  8. CAPECITABINE [Suspect]
     Active Substance: CAPECITABINE
     Indication: Breast cancer metastatic
     Dosage: 500 MG, PERSISTENT 1 DAYS
     Route: 048
     Dates: start: 20190410, end: 20190418
  9. LETROZOLE [Suspect]
     Active Substance: LETROZOLE
     Indication: Breast cancer metastatic
     Dosage: 2.5 MG, QD
     Route: 048
     Dates: start: 20180125, end: 20190418
  10. PREDNISONE [Concomitant]
     Active Substance: PREDNISONE
     Dosage: 5 MG, EVERY 1 DAY
     Route: 048
     Dates: start: 20180430, end: 20190713
  11. COUMADIN [Concomitant]
     Active Substance: WARFARIN SODIUM
     Indication: Product used for unknown indication
     Dosage: (ADDITIONAL INFORMATION ON DRUG (FREE TEXT): [ACTIONDRUG = UNKNOWN])
     Route: 048
     Dates: start: 20190713
  12. TAPAZOLE [Concomitant]
     Active Substance: METHIMAZOLE
     Indication: Product used for unknown indication
     Dosage: 2.5 MG, EVERY 1 DAY (ADDITIONAL INFORMATION ON DRUG (FREE TEXT): [ACTIONDRUG = UNKNOWN])
     Route: 048
     Dates: end: 20190713
  13. ZOFRAN [Concomitant]
     Active Substance: ONDANSETRON HYDROCHLORIDE
     Indication: Product used for unknown indication
     Dosage: 8 MG, EVERY 3 WEEK (ADDITIONAL INFORMATION ON DRUG (FREE TEXT): [ACTIONDRUG = UNKNOWN])
     Route: 042
     Dates: start: 20171010, end: 20180419
  14. CHLORPHENIRAMINE MALEATE [Concomitant]
     Active Substance: CHLORPHENIRAMINE MALEATE
     Dosage: 10 MG, EVERY 3 WEEK
     Route: 042
     Dates: start: 20171010, end: 20180419
  15. METFORMIN [Concomitant]
     Active Substance: METFORMIN HYDROCHLORIDE
     Indication: Product used for unknown indication
     Dosage: 500 MG, EVERY 1 DAY (ADDITIONAL INFORMATION ON DRUG (FREE TEXT): [ACTIONDRUG = UNKNOWN])
     Route: 048
     Dates: end: 20190713
  16. LEVETIRACETAM [Concomitant]
     Active Substance: LEVETIRACETAM
     Indication: Product used for unknown indication
     Dosage: 500 MG, EVERY 1 DAY (ADDITIONAL INFORMATION ON DRUG (FREE TEXT): [ACTIONDRUG = UNKNOWN])
     Route: 048
     Dates: end: 20190713
  17. ATORVASTATIN [Concomitant]
     Active Substance: ATORVASTATIN
     Dosage: UNK
     Route: 065
     Dates: start: 20180516
  18. LANSOPRAZOLE [Concomitant]
     Active Substance: LANSOPRAZOLE
     Dosage: ONGOING = CHECKED
     Route: 065
     Dates: start: 20180430
  19. DEXAMETHASONE [Concomitant]
     Active Substance: DEXAMETHASONE
     Indication: Product used for unknown indication
     Dosage: 8 MG, EVERY 3 WEEK (ADDITIONAL INFORMATION ON DRUG (FREE TEXT): [ACTIONDRUG = UNKNOWN])
     Route: 042
     Dates: start: 20171010, end: 20180119
  20. DEXAMETHASONE [Concomitant]
     Active Substance: DEXAMETHASONE
     Dosage: 4 MG, EVERY 3 WEEK (ADDITIONAL INFORMATION ON DRUG (FREE TEXT): [ACTIONDRUG = UNKNOWN])
     Route: 048
     Dates: start: 20180119, end: 20180419
  21. FLECAINIDE [Concomitant]
     Active Substance: FLECAINIDE
     Indication: Product used for unknown indication
     Dosage: 100 MG, EVERY 1 DAY (ADDITIONAL INFORMATION ON DRUG (FREE TEXT): [ACTIONDRUG = UNKNOWN])
     Route: 048
  22. CHOLECALCIFEROL [Concomitant]
     Active Substance: CHOLECALCIFEROL
     Indication: Product used for unknown indication
     Dosage: (ADDITIONAL INFORMATION ON DRUG (FREE TEXT): [ACTIONDRUG = UNKNOWN])
     Route: 048
  23. POTASSIUM CHLORIDE [Concomitant]
     Active Substance: POTASSIUM CHLORIDE
     Indication: Product used for unknown indication
     Dosage: 600 MG, EVERY 1 DAY
     Route: 048
     Dates: end: 20180609
  24. POTASSIUM CHLORIDE [Concomitant]
     Active Substance: POTASSIUM CHLORIDE
     Dosage: (ADDITIONAL INFORMATION ON DRUG (FREE TEXT): [ACTIONDRUG = UNKNOWN])
     Route: 065
     Dates: end: 20180609
  25. RANITIDINE [Concomitant]
     Active Substance: RANITIDINE
     Indication: Product used for unknown indication
     Dosage: 100 MG, EVERY 3 WEEK
     Route: 042
     Dates: start: 20171129, end: 20180419
  26. RANITIDINE [Concomitant]
     Active Substance: RANITIDINE
     Dosage: (ADDITIONAL INFORMATION ON DRUG (FREE TEXT): [ACTIONDRUG = UNKNOWN])
     Route: 065
     Dates: start: 20171129, end: 20180419
  27. BISOPROLOL [Concomitant]
     Active Substance: BISOPROLOL\BISOPROLOL FUMARATE
     Indication: Product used for unknown indication
     Dosage: 2.5 MG, EVERY 1 DAY (ADDITIONAL INFORMATION ON DRUG (FREE TEXT): [ACTIONDRUG = UNKNOWN])
     Route: 048
     Dates: end: 20190418
  28. FUROSEMIDE [Concomitant]
     Active Substance: FUROSEMIDE
     Dosage: 25 MG, EVERY 1 DAY
     Route: 048
     Dates: start: 20190410, end: 20190418

REACTIONS (6)
  - Decreased appetite [Recovered/Resolved]
  - Decreased appetite [Recovered/Resolved]
  - Neuropathy peripheral [Recovered/Resolved]
  - Asthenia [Recovered/Resolved]
  - Asthenia [Recovered/Resolved]
  - Asthenia [Recovered/Resolved]

NARRATIVE: CASE EVENT DATE: 20171102
